FAERS Safety Report 23852151 (Version 1)
Quarter: 2024Q2

REPORT INFORMATION
  Report Type: Other
  Country: TR (occurrence: None)
  Receive Date: 20240514
  Receipt Date: 20240514
  Transmission Date: 20240716
  Serious: Yes (Other)
  Sender: FDA-Public Use
  Company Number: TR-ROCHE-3560440

PATIENT

DRUGS (2)
  1. TOCILIZUMAB [Suspect]
     Active Substance: TOCILIZUMAB
     Indication: Juvenile idiopathic arthritis
     Route: 065
  2. TOCILIZUMAB [Suspect]
     Active Substance: TOCILIZUMAB
     Indication: Autoinflammatory disease

REACTIONS (6)
  - Anaphylactic reaction [Unknown]
  - Pancreatitis [Unknown]
  - Upper respiratory tract infection [Unknown]
  - Latent tuberculosis [Unknown]
  - Rash erythematous [Unknown]
  - Transaminases increased [Unknown]
